FAERS Safety Report 7224806-9 (Version None)
Quarter: 2011Q1

REPORT INFORMATION
  Report Type: 
  Country: None (occurrence: None)
  Receive Date: 20110104
  Receipt Date: 20101223
  Transmission Date: 20110831
  Serious: Yes (Death)
  Sender: FDA-Public Use
  Company Number: 023014

PATIENT
  Sex: Male
  Weight: 126.8 kg

DRUGS (10)
  1. COMBIVENT [Concomitant]
  2. LACOSAMIDE [Suspect]
     Indication: EPILEPSY
     Dosage: 400 MG BID ORAL
     Route: 048
     Dates: start: 20060523, end: 20101124
  3. LACOSAMIDE [Suspect]
     Indication: CONVULSION
     Dosage: 400 MG BID ORAL
     Route: 048
     Dates: start: 20060523, end: 20101124
  4. PHENYTEK /00017401/ [Concomitant]
  5. NASONEX [Concomitant]
  6. LORAZEPAM [Concomitant]
  7. DILANTIN [Concomitant]
  8. ZONEGRAN [Concomitant]
  9. LISINOPRIL AND HYDROCHLOROTHIAZIDE [Concomitant]
  10. PROZAC /00724401/ [Concomitant]

REACTIONS (3)
  - BRUXISM [None]
  - CATATONIA [None]
  - SUDDEN DEATH [None]
